FAERS Safety Report 8841914 (Version 1)
Quarter: 2012Q4

REPORT INFORMATION
  Report Type: Spontaneous
  Country: US (occurrence: None)
  Receive Date: 20121015
  Receipt Date: 20121015
  Transmission Date: 20130627
  Serious: Yes (Hospitalization)
  Sender: FDA-Public Use
  Company Number: None

PATIENT
  Sex: Female
  Weight: 69.2 kg

DRUGS (2)
  1. GEMCITABINE [Suspect]
     Dosage: 1000mg/m2 D1, 8, 15of 28
  2. TARCEVA [Suspect]
     Dosage: 150 mg D2-5, 9-12, 16-26

REACTIONS (4)
  - Abdominal distension [None]
  - Hyponatraemia [None]
  - Leukocytosis [None]
  - Thrombocytopenia [None]
